FAERS Safety Report 8720993 (Version 3)
Quarter: 2012Q4

REPORT INFORMATION
  Report Type: 
  Country: JP (occurrence: JP)
  Receive Date: 20120813
  Receipt Date: 20121219
  Transmission Date: 20130627
  Serious: Yes (Hospitalization)
  Sender: FDA-Public Use
  Company Number: JP-009507513-1208JPN005148

PATIENT
  Age: 63 Year
  Sex: Female
  Weight: 77 kg

DRUGS (14)
  1. PEGINTRON [Suspect]
     Indication: CHRONIC HEPATITIS C
     Dosage: 100 Microgram per kilogram, qw
     Route: 058
     Dates: start: 20120526, end: 20120630
  2. PEGINTRON [Suspect]
     Dosage: 50/83.4 microgram/kg/wk, qw
     Route: 058
     Dates: start: 20120630, end: 20120721
  3. REBETOL [Suspect]
     Indication: CHRONIC HEPATITIS C
     Dosage: 600 mg, qd
     Route: 048
     Dates: start: 20120526, end: 20120615
  4. REBETOL [Suspect]
     Dosage: 400 mg, qd
     Route: 048
     Dates: start: 20120616, end: 20120630
  5. TELAVIC [Suspect]
     Indication: CHRONIC HEPATITIS C
     Dosage: 500 mg, tid
     Route: 048
     Dates: start: 20120526, end: 20120630
  6. ATMIPHEN [Concomitant]
     Indication: PROPHYLAXIS
     Dosage: 800 mg, qd
     Route: 048
     Dates: end: 20120906
  7. DIOVAN [Concomitant]
     Indication: HYPERTENSION
     Dosage: 40 mg, qd
     Route: 048
     Dates: end: 20120921
  8. TENORMIN [Concomitant]
     Indication: HYPERTENSION
     Dosage: 25 mg, qd
     Route: 048
     Dates: end: 20120904
  9. RIBALL [Concomitant]
     Indication: HYPERURICAEMIA
     Dosage: 200 mg, qd
     Route: 048
     Dates: end: 20120826
  10. RINDERON-VG [Concomitant]
     Indication: PROPHYLAXIS
     Dosage: 10 g, qd
     Route: 061
     Dates: start: 20120616, end: 20121004
  11. DIURETIC (UNSPECIFIED) [Concomitant]
     Dosage: UNK
  12. ALDACTONE A [Concomitant]
     Dosage: UNK, Formulation: POR
     Route: 048
  13. VITAMIN B (UNSPECIFIED) [Concomitant]
     Dosage: UNK
  14. POSTERISAN [Concomitant]
     Dosage: UNK, Formulation: Ext
     Route: 061

REACTIONS (1)
  - Generalised erythema [Not Recovered/Not Resolved]
